FAERS Safety Report 6809324-1 (Version None)
Quarter: 2010Q2

REPORT INFORMATION
  Report Type: 
  Country: None (occurrence: None)
  Receive Date: 20100630
  Receipt Date: 20100628
  Transmission Date: 20101027
  Serious: No
  Sender: FDA-Public Use
  Company Number: US-ASTRAZENECA-2007UW13930

PATIENT
  Age: 597 Month
  Sex: Female
  Weight: 90.7 kg

DRUGS (16)
  1. SEROQUEL [Suspect]
     Indication: BIPOLAR DISORDER
     Dosage: 25-600 MG
     Route: 048
     Dates: start: 20010519
  2. SEROQUEL [Suspect]
     Indication: SCHIZOAFFECTIVE DISORDER
     Dosage: 25-600 MG
     Route: 048
     Dates: start: 20010519
  3. SEROQUEL [Suspect]
     Indication: DEPRESSION
     Dosage: 25-600 MG
     Route: 048
     Dates: start: 20010519
  4. SEROQUEL [Suspect]
     Dosage: 200-500 MG
     Route: 048
     Dates: start: 20010524, end: 20061201
  5. SEROQUEL [Suspect]
     Dosage: 200-500 MG
     Route: 048
     Dates: start: 20010524, end: 20061201
  6. SEROQUEL [Suspect]
     Dosage: 200-500 MG
     Route: 048
     Dates: start: 20010524, end: 20061201
  7. PROZAC [Concomitant]
     Dosage: 20-800 MG
     Route: 048
     Dates: start: 19980101
  8. AMBIEN [Concomitant]
     Route: 065
     Dates: start: 20030811
  9. GEODON [Concomitant]
     Dosage: 40-80 MG
     Route: 048
     Dates: start: 20030217
  10. DESYREL [Concomitant]
     Dosage: 75-150 MG
     Route: 065
     Dates: start: 20001108
  11. AVANDIA [Concomitant]
     Route: 065
     Dates: start: 20030623
  12. XANAX [Concomitant]
     Dosage: 0.5-1.5 MG,25MG
     Route: 048
     Dates: start: 20001108
  13. TAMOXIFEN CITRATE [Concomitant]
     Route: 050
     Dates: start: 20030811
  14. HALDOL [Concomitant]
  15. THORAZINE [Concomitant]
  16. WELLBUTRIN [Concomitant]
     Dates: end: 20080101

REACTIONS (8)
  - ANGIOPATHY [None]
  - BREAST DISORDER [None]
  - GLUCOSE TOLERANCE IMPAIRED [None]
  - INFECTIOUS DISEASE CARRIER [None]
  - METABOLIC SYNDROME [None]
  - THROMBOSIS [None]
  - TYPE 1 DIABETES MELLITUS [None]
  - TYPE 2 DIABETES MELLITUS [None]
